FAERS Safety Report 15287544 (Version 1)
Quarter: 2018Q4

REPORT INFORMATION
  Report Type: Spontaneous
  Country: DK (occurrence: DK)
  Receive Date: 20180817
  Receipt Date: 20180817
  Transmission Date: 20190204
  Serious: Yes (Hospitalization)
  Sender: FDA-Public Use
  Company Number: DK-TEVA-791118ACC

PATIENT
  Age: 45 Year
  Sex: Female
  Weight: 87 kg

DRUGS (8)
  1. SENDOXAN [Suspect]
     Active Substance: CYCLOPHOSPHAMIDE
     Indication: INVASIVE DUCTAL BREAST CARCINOMA
     Dosage: DOSIS: BEHANDLET MED TRE UGERS MELLEMRUM
     Route: 065
     Dates: start: 201410, end: 20150217
  2. ZOLADEX [Suspect]
     Active Substance: GOSERELIN ACETATE
     Indication: INVASIVE DUCTAL BREAST CARCINOMA
     Dosage: GOSERELINACETAT
     Route: 058
     Dates: start: 201504
  3. EPIRUBICIN ACTAVIS [Suspect]
     Active Substance: EPIRUBICIN
     Indication: INVASIVE DUCTAL BREAST CARCINOMA
     Dosage: EPIRUBICIN D. 04.11.2014, 25.11.2014 OG 16.12.2014.
     Route: 042
     Dates: start: 201410, end: 201501
  4. TAXOTERE [Suspect]
     Active Substance: DOCETAXEL
     Indication: PROPHYLAXIS
     Route: 065
  5. SENDOXAN [Suspect]
     Active Substance: CYCLOPHOSPHAMIDE
     Indication: PROPHYLAXIS
     Dosage: DOSIS: BEHANDLET MED TRE UGERS MELLEMRUM.
     Route: 065
     Dates: start: 20141104, end: 20150217
  6. ARIMIDEX [Suspect]
     Active Substance: ANASTROZOLE
     Indication: INVASIVE DUCTAL BREAST CARCINOMA
     Dosage: STYRKE: 1 MG
     Route: 048
     Dates: start: 201603
  7. EPIRUBICIN ACTAVIS [Suspect]
     Active Substance: EPIRUBICIN
     Indication: PROPHYLAXIS
     Dosage: DOSAGE TREATED EVERY THREE WEEKS
     Route: 065
     Dates: start: 20141104, end: 20150217
  8. DOCETAXEL ^HOSPIRA^ [Suspect]
     Active Substance: DOCETAXEL
     Indication: INVASIVE DUCTAL BREAST CARCINOMA
     Dosage: KEMOTERAPI I HENHOLD TIL PROTOKOL B. 17FEB2015 6.SERIE.201 MG
     Route: 042
     Dates: start: 201501

REACTIONS (4)
  - Arthralgia [Not Recovered/Not Resolved]
  - Gait disturbance [Not Recovered/Not Resolved]
  - Pain in extremity [Not Recovered/Not Resolved]
  - Myalgia [Unknown]

NARRATIVE: CASE EVENT DATE: 20150411
